FAERS Safety Report 24641205 (Version 1)
Quarter: 2024Q4

REPORT INFORMATION
  Report Type: Spontaneous
  Country: US (occurrence: US)
  Receive Date: 20241120
  Receipt Date: 20241120
  Transmission Date: 20250115
  Serious: No
  Sender: ROCHE
  Company Number: US-ROCHE-10000130836

PATIENT
  Age: 29 Year
  Sex: Male

DRUGS (13)
  1. ALECTINIB [Suspect]
     Active Substance: ALECTINIB
     Indication: Anaplastic large cell lymphoma T- and null-cell types
     Route: 065
  2. ETOPOSIDE [Concomitant]
     Active Substance: ETOPOSIDE
  3. PREDNISONE [Concomitant]
     Active Substance: PREDNISONE
  4. VINCRISTINE [Concomitant]
     Active Substance: VINCRISTINE
  5. CYCLOPHOSPHAMIDE [Concomitant]
     Active Substance: CYCLOPHOSPHAMIDE
  6. DOXORUBICIN [Concomitant]
     Active Substance: DOXORUBICIN
  7. BORTEZOMIB [Concomitant]
     Active Substance: BORTEZOMIB
  8. METHOTREXATE [Concomitant]
     Active Substance: METHOTREXATE
  9. CYTARABINE [Concomitant]
     Active Substance: CYTARABINE
  10. DEXAMETHASONE [Concomitant]
     Active Substance: DEXAMETHASONE
  11. CISPLATIN [Concomitant]
     Active Substance: CISPLATIN
  12. TACROLIMUS [Concomitant]
     Active Substance: TACROLIMUS
  13. LORLATINIB [Concomitant]
     Active Substance: LORLATINIB

REACTIONS (3)
  - Drug resistance [Unknown]
  - Disease progression [Unknown]
  - Drug ineffective [Unknown]
